FAERS Safety Report 21579168 (Version 3)
Quarter: 2024Q4

REPORT INFORMATION
  Report Type: Spontaneous
  Country: US (occurrence: US)
  Receive Date: 20221110
  Receipt Date: 20241110
  Transmission Date: 20250115
  Serious: No
  Sender: SANOFI AVENTIS
  Company Number: US-SA-SAC20221107001545

PATIENT
  Age: 57 Year
  Sex: Female

DRUGS (24)
  1. DUPIXENT [Suspect]
     Active Substance: DUPILUMAB
     Indication: Asthma
     Dosage: 400 MG 1X
     Route: 058
     Dates: start: 20221019, end: 20221019
  2. DUPIXENT [Suspect]
     Active Substance: DUPILUMAB
     Dosage: 200 MG, QOW
     Route: 058
     Dates: start: 2022
  3. ALBUTEROL [Concomitant]
     Active Substance: ALBUTEROL
     Dosage: UNK
  4. METFORMIN [Concomitant]
     Active Substance: METFORMIN HYDROCHLORIDE
     Dosage: UNK
     Route: 048
  5. MONTELUKAST [Concomitant]
     Active Substance: MONTELUKAST
     Dosage: UNK
  6. OMEPRAZOLE [Concomitant]
     Active Substance: OMEPRAZOLE
     Dosage: UNK
  7. PROAIR HFA [Concomitant]
     Active Substance: ALBUTEROL SULFATE
     Dosage: UNK
  8. SPIRIVA [Concomitant]
     Active Substance: TIOTROPIUM BROMIDE MONOHYDRATE
     Dosage: UNK
     Route: 055
  9. METHYLPREDNISOLONE [Concomitant]
     Active Substance: METHYLPREDNISOLONE
  10. RIFAMPIN [Concomitant]
     Active Substance: RIFAMPIN
  11. PREDNISONE [Concomitant]
     Active Substance: PREDNISONE
  12. LISINOPRIL [Concomitant]
     Active Substance: LISINOPRIL
  13. GABAPENTIN [Concomitant]
     Active Substance: GABAPENTIN
  14. AZELASTINE HYDROCHLORIDE [Concomitant]
     Active Substance: AZELASTINE HYDROCHLORIDE
  15. FLUTICASONE PROPIONATE [Concomitant]
     Active Substance: FLUTICASONE PROPIONATE
  16. TRULICITY [Concomitant]
     Active Substance: DULAGLUTIDE
  17. BENZONATATE [Concomitant]
     Active Substance: BENZONATATE
  18. VITAMIN D3 [Concomitant]
     Active Substance: CHOLECALCIFEROL
  19. ALBUTEROL SULFATE [Concomitant]
     Active Substance: ALBUTEROL SULFATE
  20. SPIRIVA [Concomitant]
     Active Substance: TIOTROPIUM BROMIDE MONOHYDRATE
  21. BASAGLAR [Concomitant]
     Active Substance: INSULIN GLARGINE
  22. LORATADINE [Concomitant]
     Active Substance: LORATADINE
  23. ROBAFEN [GUAIFENESIN] [Concomitant]
  24. AZITHROMYCIN [Concomitant]
     Active Substance: AZITHROMYCIN

REACTIONS (4)
  - Impaired quality of life [Unknown]
  - Oropharyngeal pain [Unknown]
  - Eye irritation [Unknown]
  - Drug ineffective [Unknown]
